FAERS Safety Report 9553590 (Version 2)
Quarter: 2013Q4

REPORT INFORMATION
  Report Type: Spontaneous
  Country: US (occurrence: US)
  Receive Date: 20130925
  Receipt Date: 20131002
  Transmission Date: 20140711
  Serious: Yes (Other)
  Sender: FDA-Public Use
  Company Number: US-PERRIGO-13US009686

PATIENT
  Age: 18 Month
  Sex: Male

DRUGS (2)
  1. ACETAMINOPHEN CHILD CHERRY 32 MG/ML 175 [Suspect]
     Indication: ACCIDENTAL OVERDOSE
     Dosage: APPROXIMATELY 3840 MG, SINGLE
     Route: 048
     Dates: start: 20130917, end: 20130917
  2. ACETAMINOPHEN CHILD CHERRY 32 MG/ML 175 [Suspect]
     Indication: PRODUCT USED FOR UNKNOWN INDICATION
     Dosage: UNK, SINGLE
     Route: 048
     Dates: start: 20130917, end: 20130917

REACTIONS (2)
  - Accidental overdose [Recovered/Resolved]
  - Drug administered to patient of inappropriate age [Recovered/Resolved]
